FAERS Safety Report 5034096-3 (Version None)
Quarter: 2006Q2

REPORT INFORMATION
  Report Type: 
  Country: None (occurrence: None)
  Receive Date: 20060626
  Receipt Date: 20060613
  Transmission Date: 20061013
  Serious: Yes (Hospitalization)
  Sender: FDA-Public Use
  Company Number: 2006AP02712

PATIENT
  Age: 17522 Day
  Sex: Male
  Weight: 65 kg

DRUGS (7)
  1. IRESSA [Suspect]
     Indication: SQUAMOUS CELL CARCINOMA
     Route: 048
     Dates: start: 20060530, end: 20060613
  2. RADIOTHERAPY [Suspect]
     Dosage: NOT COMMENCED
  3. CISPLATIN [Suspect]
     Dosage: NOT COMMENCED
  4. CARBOPLATIN [Suspect]
     Dosage: NOT COMMENCED
  5. TEMAZEPAM [Concomitant]
     Indication: PROPHYLAXIS
     Route: 048
     Dates: start: 20060530
  6. ENDONE [Concomitant]
     Indication: PAIN
     Route: 048
     Dates: start: 20060607
  7. LACTULOSE [Concomitant]
     Indication: CONSTIPATION PROPHYLAXIS
     Route: 048
     Dates: start: 20060607

REACTIONS (1)
  - PHARYNGEAL FISTULA [None]
